FAERS Safety Report 10387471 (Version 1)
Quarter: 2014Q3

REPORT INFORMATION
  Report Type: Spontaneous
  Country: US (occurrence: US)
  Receive Date: 20140815
  Receipt Date: 20140815
  Transmission Date: 20150326
  Serious: No
  Sender: FDA-Public Use
  Company Number: US-TARO-2013P1013367

PATIENT
  Age: 87 Year
  Sex: Male

DRUGS (3)
  1. HYDROCORTISONE CREAM OTC [Concomitant]
     Dosage: HS
     Route: 061
     Dates: start: 201307
  2. OTHER UNSPECIFIED MEDICATIONS [Concomitant]
     Active Substance: UNSPECIFIED INGREDIENT
  3. LAMISIL [Suspect]
     Active Substance: TERBINAFINE HYDROCHLORIDE
     Dosage: QD
     Route: 061
     Dates: start: 20130716

REACTIONS (1)
  - Drug ineffective [Not Recovered/Not Resolved]

NARRATIVE: CASE EVENT DATE: 20130716
